FAERS Safety Report 7081293-1 (Version None)
Quarter: 2010Q4

REPORT INFORMATION
  Report Type: 
  Country: None (occurrence: None)
  Receive Date: 20101103
  Receipt Date: 20101020
  Transmission Date: 20110411
  Serious: Yes (Other)
  Sender: FDA-Public Use
  Company Number: PHHY2010DE57460

PATIENT
  Age: 70 Year
  Sex: Male
  Weight: 71.5 kg

DRUGS (2)
  1. ZOMETA [Suspect]
     Indication: METASTASES TO BONE
     Dosage: ONCE MONTHLY
     Route: 042
     Dates: start: 20090901
  2. ANTIBIOTICS [Concomitant]

REACTIONS (9)
  - BONE DEBRIDEMENT [None]
  - BONE DISORDER [None]
  - BREATH ODOUR [None]
  - HAEMORRHAGE [None]
  - IMPLANT SITE INFLAMMATION [None]
  - MEDICAL DEVICE REMOVAL [None]
  - OSTEOMYELITIS [None]
  - OSTEONECROSIS OF JAW [None]
  - PURULENCE [None]
